FAERS Safety Report 15392414 (Version 1)
Quarter: 2018Q3

REPORT INFORMATION
  Report Type: Spontaneous
  Country: US (occurrence: US)
  Receive Date: 20180911
  Receipt Date: 20180911
  Transmission Date: 20181010
  Serious: Yes (Life-Threatening, Hospitalization)
  Sender: FDA-Public Use
  Company Number: None

PATIENT
  Age: 4 Month
  Sex: Male

DRUGS (4)
  1. NEUPOGEN [Suspect]
     Active Substance: FILGRASTIM
     Indication: NEUTROPENIA
     Route: 058
     Dates: start: 20180818
  2. VITAMIN D [Concomitant]
     Active Substance: CHOLECALCIFEROL
  3. POLETH GLYCO [Concomitant]
  4. RANITIDINE. [Concomitant]
     Active Substance: RANITIDINE

REACTIONS (2)
  - Tumour necrosis [None]
  - Pyrexia [None]

NARRATIVE: CASE EVENT DATE: 20180819
